FAERS Safety Report 24760068 (Version 1)
Quarter: 2024Q4

REPORT INFORMATION
  Report Type: Spontaneous
  Country: US (occurrence: None)
  Receive Date: 20241219
  Receipt Date: 20241219
  Transmission Date: 20250114
  Serious: No
  Sender: Public
  Company Number: None

PATIENT
  Age: 33 Year
  Sex: Female
  Weight: 93.3 kg

DRUGS (2)
  1. INFUVITE ADULT [Suspect]
     Active Substance: .ALPHA.-TOCOPHEROL ACETATE\ASCORBIC ACID\BIOTIN\CHOLECALCIFEROL\CYANOCOBALAMIN\DEXPANTHENOL\FOLIC AC
     Indication: Hyperemesis gravidarum
     Dosage: OTHER FREQUENCY : ONCE;?
     Route: 042
     Dates: start: 20241125, end: 20241125
  2. THIAMINE [Suspect]
     Active Substance: THIAMINE
     Indication: Hyperemesis gravidarum
     Dosage: OTHER FREQUENCY : ONCE;?
     Route: 042
     Dates: start: 20241125, end: 20241125

REACTIONS (4)
  - Infusion related reaction [None]
  - Flushing [None]
  - Dyspnoea [None]
  - Cough [None]

NARRATIVE: CASE EVENT DATE: 20241125
